FAERS Safety Report 16578151 (Version 1)
Quarter: 2019Q3

REPORT INFORMATION
  Report Type: Spontaneous
  Country: US (occurrence: US)
  Receive Date: 20190603
  Receipt Date: 20190603
  Transmission Date: 20191004
  Serious: No
  Sender: FDA-Public Use
  Company Number: None

PATIENT
  Age: 12 Year
  Sex: Male

DRUGS (1)
  1. ZOMACTON [Suspect]
     Active Substance: SOMATROPIN
     Dates: start: 201812

REACTIONS (3)
  - Injection site pain [None]
  - Needle issue [None]
  - Injection site haemorrhage [None]

NARRATIVE: CASE EVENT DATE: 20190529
